FAERS Safety Report 18818471 (Version 1)
Quarter: 2021Q1

REPORT INFORMATION
  Report Type: Spontaneous
  Country: IR (occurrence: IR)
  Receive Date: 20210201
  Receipt Date: 20210201
  Transmission Date: 20210419
  Serious: Yes (Life-Threatening, Hospitalization)
  Sender: FDA-Public Use
  Company Number: IR-AZURITY PHARMACEUTICALS, INC.-2021AZY00009

PATIENT
  Age: 30 Year
  Sex: Female

DRUGS (1)
  1. METHOTREXATE. [Suspect]
     Active Substance: METHOTREXATE
     Indication: ECTOPIC PREGNANCY
     Dosage: 80 MG, ONCE
     Route: 030

REACTIONS (9)
  - Toxicity to various agents [Recovered/Resolved]
  - Septic shock [Recovered/Resolved]
  - Hypernatraemia [Recovered/Resolved]
  - Neurotoxicity [Recovered/Resolved]
  - Skin ulcer [Recovered/Resolved]
  - Alopecia [Recovered/Resolved]
  - Skin hyperpigmentation [Recovered/Resolved]
  - Dehydration [Recovered/Resolved]
  - Pancytopenia [Recovered/Resolved]
